FAERS Safety Report 7409522-2 (Version None)
Quarter: 2011Q2

REPORT INFORMATION
  Report Type: 
  Country: None (occurrence: None)
  Receive Date: 20110407
  Receipt Date: 20110407
  Transmission Date: 20111010
  Serious: Yes (Hospitalization)
  Sender: FDA-Public Use
  Company Number: None

PATIENT
  Sex: Female
  Weight: 96.6 kg

DRUGS (2)
  1. PACLITAXEL [Suspect]
     Dosage: 350 MG
  2. CARBOPLATIN [Suspect]
     Dosage: 820 MG

REACTIONS (2)
  - PALPITATIONS [None]
  - SINUS TACHYCARDIA [None]
